FAERS Safety Report 14905324 (Version 1)
Quarter: 2018Q2

REPORT INFORMATION
  Report Type: Spontaneous
  Country: US (occurrence: US)
  Receive Date: 20180517
  Receipt Date: 20180517
  Transmission Date: 20180711
  Serious: No
  Sender: FDA-Public Use
  Company Number: US-SA-2017SA249301

PATIENT
  Sex: Female

DRUGS (4)
  1. LANTUS SOLOSTAR [Suspect]
     Active Substance: INSULIN GLARGINE
     Dosage: DOSE - TAKES HER DOSE BASED UPON HER BLOOD SUGAR
     Route: 051
  2. SOLOSTAR [Suspect]
     Active Substance: DEVICE
     Dosage: DOSE - TAKES HER DOSE BASED UPON HER BLOOD SUGAR
     Route: 051
  3. METFORMIN [Suspect]
     Active Substance: METFORMIN HYDROCHLORIDE
     Route: 065
  4. METOPROLOL. [Suspect]
     Active Substance: METOPROLOL
     Route: 065

REACTIONS (4)
  - Tremor [Unknown]
  - Headache [Unknown]
  - Blood glucose decreased [Unknown]
  - Incorrect dose administered [Unknown]
